FAERS Safety Report 25658231 (Version 1)
Quarter: 2025Q3

REPORT INFORMATION
  Report Type: Spontaneous
  Country: US (occurrence: US)
  Receive Date: 20250808
  Receipt Date: 20250808
  Transmission Date: 20251021
  Serious: No
  Sender: Kenvue
  Company Number: US-KENVUE-20250708100

PATIENT
  Sex: Female

DRUGS (2)
  1. MENS ROGAINE EXTRA STRENGTH [Suspect]
     Active Substance: MINOXIDIL
     Indication: Alopecia
     Route: 065
  2. MENS ROGAINE EXTRA STRENGTH [Suspect]
     Active Substance: MINOXIDIL
     Route: 065

REACTIONS (3)
  - Off label use [Unknown]
  - Product container issue [Unknown]
  - Poor quality product administered [Unknown]
